FAERS Safety Report 9978006 (Version 1)
Quarter: 2014Q1

REPORT INFORMATION
  Report Type: Report from Study
  Country: US (occurrence: US)
  Receive Date: 20140306
  Receipt Date: 20140306
  Transmission Date: 20141002
  Serious: No
  Sender: FDA-Public Use
  Company Number: US-ABBVIE-13P-163-1161966-00

PATIENT
  Age: 76 Year
  Sex: Female

DRUGS (17)
  1. HUMIRA [Suspect]
     Indication: CROHN^S DISEASE
     Dates: start: 20130730
  2. ALPHAGAN [Concomitant]
     Indication: GLAUCOMA
     Dosage: TO BOTH EYES
  3. ALLOPURINOL [Concomitant]
     Indication: GOUT
     Dosage: 100 MG DAILY
  4. AMLODIPINE [Concomitant]
     Indication: BLOOD PRESSURE
     Dosage: 10 MG DAILY
  5. AMOXICILLIN [Concomitant]
     Indication: PRODUCT USED FOR UNKNOWN INDICATION
     Dosage: 4 CAPS BEFORE DENTAL APPOINTMENT
  6. FENOFIBRATE [Concomitant]
     Indication: BLOOD CHOLESTEROL
     Dosage: 200 MG DAILY
  7. LASIX [Concomitant]
     Indication: DIURETIC THERAPY
     Dosage: 0.5 TAB DAILY
  8. KCL [Concomitant]
     Indication: PRODUCT USED FOR UNKNOWN INDICATION
     Dosage: 20 MEQ DAILY
  9. LISINOPRIL [Concomitant]
     Indication: BLOOD PRESSURE
     Dosage: 40 MG DAILY
  10. METOPROLOL [Concomitant]
     Indication: CARDIAC DISORDER
     Dosage: 50 MG DAILY
  11. NIASPAN [Concomitant]
     Indication: BLOOD CHOLESTEROL
     Dosage: AT BEDTIME
  12. ONDANSETRON [Concomitant]
     Indication: NAUSEA
     Dosage: 1-2 TABS
  13. PRILOSEC [Concomitant]
     Indication: GASTRIC DISORDER
  14. STOOL SOFTENER [Concomitant]
     Indication: PRODUCT USED FOR UNKNOWN INDICATION
  15. TYLENOL PM [Concomitant]
     Indication: PRODUCT USED FOR UNKNOWN INDICATION
  16. CENTRUM SILVER [Concomitant]
     Indication: VITAMIN SUPPLEMENTATION
     Dosage: DAILY
  17. FISH OIL [Concomitant]
     Indication: VITAMIN SUPPLEMENTATION
     Dosage: DAILY

REACTIONS (2)
  - Injection site pain [Recovered/Resolved]
  - Injection site haemorrhage [Recovered/Resolved]
